FAERS Safety Report 21472396 (Version 1)
Quarter: 2022Q4

REPORT INFORMATION
  Report Type: Spontaneous
  Country: RU (occurrence: None)
  Receive Date: 20221018
  Receipt Date: 20221018
  Transmission Date: 20230113
  Serious: Yes (Other)
  Sender: FDA-Public Use
  Company Number: 2022A345427

PATIENT
  Age: 68 Year
  Sex: Male
  Weight: 92 kg

DRUGS (2)
  1. DAPAGLIFLOZIN [Suspect]
     Active Substance: DAPAGLIFLOZIN
     Indication: Type 2 diabetes mellitus
     Route: 048
  2. DAPAGLIFLOZIN [Suspect]
     Active Substance: DAPAGLIFLOZIN
     Indication: Type 2 diabetes mellitus
     Route: 048

REACTIONS (4)
  - Ketonuria [Recovered/Resolved]
  - Hyperglycaemia [Recovered/Resolved]
  - Dry mouth [Recovered/Resolved]
  - Asthenia [Recovered/Resolved]
